FAERS Safety Report 12714592 (Version 2)
Quarter: 2016Q4

REPORT INFORMATION
  Report Type: Report from Study
  Country: US (occurrence: US)
  Receive Date: 20160905
  Receipt Date: 20161013
  Transmission Date: 20170207
  Serious: Yes (Other)
  Sender: FDA-Public Use
  Company Number: US-AMGEN-USASL2016019642

PATIENT
  Age: 84 Year
  Sex: Female

DRUGS (1)
  1. PROLIA [Suspect]
     Active Substance: DENOSUMAB
     Indication: OSTEOPOROSIS
     Dosage: UNK
     Route: 065
     Dates: start: 20160201

REACTIONS (29)
  - Ocular hypertension [Unknown]
  - Adverse drug reaction [Unknown]
  - Headache [Unknown]
  - Malaise [Unknown]
  - Gastrointestinal disorder [Unknown]
  - Quality of life decreased [Unknown]
  - Pain in jaw [Unknown]
  - Trismus [Unknown]
  - Neck pain [Unknown]
  - Peripheral swelling [Unknown]
  - Glossodynia [Unknown]
  - Sinus disorder [Unknown]
  - Eye disorder [Unknown]
  - Diarrhoea [Unknown]
  - Jaw disorder [Unknown]
  - Dyspnoea [Unknown]
  - Glossitis [Unknown]
  - Hypoacusis [Unknown]
  - Pain [Unknown]
  - Glaucoma [Recovering/Resolving]
  - Sinusitis [Unknown]
  - Discomfort [Unknown]
  - Swollen tongue [Unknown]
  - Activities of daily living impaired [Unknown]
  - Abasia [Unknown]
  - Chest discomfort [Unknown]
  - Musculoskeletal disorder [Unknown]
  - Epistaxis [Unknown]
  - Pupillary disorder [Unknown]

NARRATIVE: CASE EVENT DATE: 2016
